FAERS Safety Report 7961098-7 (Version None)
Quarter: 2011Q4

REPORT INFORMATION
  Report Type: 
  Country: None (occurrence: None)
  Receive Date: 20111201
  Receipt Date: 20111201
  Transmission Date: 20120403
  Serious: No
  Sender: FDA-Public Use
  Company Number: None

PATIENT
  Age: 58 Year
  Sex: Female

DRUGS (1)
  1. AVONEX [Suspect]
     Dosage: 30MCG QW IM
     Route: 030
     Dates: start: 20060115

REACTIONS (2)
  - ERYTHEMA [None]
  - INJECTION SITE PAIN [None]
